FAERS Safety Report 7651168-5 (Version None)
Quarter: 2011Q3

REPORT INFORMATION
  Report Type: 
  Country: None (occurrence: None)
  Receive Date: 20110802
  Receipt Date: 20110721
  Transmission Date: 20111222
  Serious: Yes (Other)
  Sender: FDA-Public Use
  Company Number: US-JNJFOC-20110709566

PATIENT
  Sex: Female
  Weight: 58.06 kg

DRUGS (2)
  1. REMICADE [Suspect]
     Route: 042
     Dates: start: 20110201
  2. REMICADE [Suspect]
     Indication: COLITIS ULCERATIVE
     Route: 042
     Dates: start: 20110301

REACTIONS (13)
  - HYPOAESTHESIA [None]
  - ALOPECIA [None]
  - CANDIDIASIS [None]
  - DYSPHAGIA [None]
  - OEDEMA PERIPHERAL [None]
  - ERYTHEMA [None]
  - MUSCLE TIGHTNESS [None]
  - INFLUENZA LIKE ILLNESS [None]
  - FEELING HOT [None]
  - PAIN IN EXTREMITY [None]
  - MUSCULOSKELETAL DISCOMFORT [None]
  - INFUSION RELATED REACTION [None]
  - DRUG INEFFECTIVE [None]
